FAERS Safety Report 8266945 (Version 3)
Quarter: 2013Q2

REPORT INFORMATION
  Report Type: Spontaneous
  Country: JP (occurrence: None)
  Receive Date: 20111116
  Receipt Date: 20130524
  Transmission Date: 20140414
  Serious: Yes (Other)
  Sender: FDA-Public Use
  Company Number: ADR-2010-9773

PATIENT
  Age: 33 Year
  Sex: Male

DRUGS (1)
  1. BACLOFEN [Suspect]
     Indication: MUSCLE SPASTICITY
     Route: 037

REACTIONS (6)
  - Feeling hot [None]
  - Implant site swelling [None]
  - Intracranial hypotension [None]
  - Headache [None]
  - Incision site complication [None]
  - Cerebrospinal fluid leakage [None]
